FAERS Safety Report 9840011 (Version 1)
Quarter: 2013Q4

REPORT INFORMATION
  Report Type: Spontaneous
  Country: US (occurrence: None)
  Receive Date: 20131206
  Receipt Date: 20131206
  Transmission Date: 20140711
  Serious: Yes (Hospitalization)
  Sender: FDA-Public Use
  Company Number: 368967

PATIENT
  Age: 13 Year
  Sex: Female
  Weight: 45.4 kg

DRUGS (2)
  1. LEVEMIR FLEXPEN [Suspect]
     Indication: TYPE 1 DIABETES MELLITUS
     Dosage: 39 U IN AM, 43 U IN PM
     Route: 058
     Dates: start: 2011
  2. NOVOLOG FLEXPEN [Suspect]
     Indication: TYPE 1 DIABETES MELLITUS
     Dosage: SLIDING SCALE
     Route: 058
     Dates: start: 200907

REACTIONS (1)
  - Diabetic ketoacidosis [None]
